FAERS Safety Report 17557474 (Version 2)
Quarter: 2020Q2

REPORT INFORMATION
  Report Type: Report from Study
  Country: GB (occurrence: GB)
  Receive Date: 20200318
  Receipt Date: 20200403
  Transmission Date: 20200713
  Serious: Yes (Hospitalization)
  Sender: FDA-Public Use
  Company Number: GB-IBIGEN-2020.08468

PATIENT
  Age: 56 Year
  Sex: Male
  Weight: 74.1 kg

DRUGS (11)
  1. FOLIC ACID GENERIC [Concomitant]
     Dosage: 5 MG, QW
     Route: 048
  2. DUPIXENT [Suspect]
     Active Substance: DUPILUMAB
     Indication: DERMATITIS ALLERGIC
     Dosage: 300 MG, QOW
     Route: 058
     Dates: start: 20200130
  3. HYLO [Concomitant]
     Indication: DRY EYE
     Dosage: UNK UNK, QD
     Route: 047
  4. PENICILLIN [PENICILLIN NOS] [Suspect]
     Active Substance: PENICILLIN
  5. DUPIXENT [Suspect]
     Active Substance: DUPILUMAB
     Indication: DERMATITIS ATOPIC
     Dosage: 300 MG, QOW
     Route: 058
     Dates: start: 20200130
  6. PREDNISOLONE. [Concomitant]
     Active Substance: PREDNISOLONE
     Indication: LUNG DISORDER
     Dosage: 4 MG, QD, REDUCING DOSAGE
     Route: 048
  7. PREDNISOLONE. [Concomitant]
     Active Substance: PREDNISOLONE
     Indication: ECZEMA
     Dosage: 4 MG, QD, REDUCING DOSAGE
     Route: 048
  8. ALENDRONIC ACID [ALENDRONATE SODIUM] [Concomitant]
     Indication: OSTEOPOROSIS
     Dosage: 70 MG, QW
     Route: 048
  9. PREDNISOLONE. [Concomitant]
     Active Substance: PREDNISOLONE
     Indication: LUNG DISORDER
     Dosage: 1 MG, QD
     Route: 048
  10. METHOTREXATE. [Concomitant]
     Active Substance: METHOTREXATE
     Indication: ECZEMA
     Dosage: 20 MG 8 PER WEEK
     Route: 048
  11. PREDNISOLONE. [Concomitant]
     Active Substance: PREDNISOLONE
     Indication: ECZEMA
     Dosage: 1 MG, QD
     Route: 048

REACTIONS (7)
  - Arthralgia [Recovering/Resolving]
  - Abdominal discomfort [Recovering/Resolving]
  - Arthralgia [Recovered/Resolved]
  - Rash erythematous [Recovering/Resolving]
  - Joint swelling [Recovering/Resolving]
  - Erythema [Not Recovered/Not Resolved]
  - Abdominal pain upper [Recovered/Resolved]

NARRATIVE: CASE EVENT DATE: 20200131
